FAERS Safety Report 8629369 (Version 5)
Quarter: 2013Q1

REPORT INFORMATION
  Report Type: Spontaneous
  Country: US (occurrence: US)
  Receive Date: 20120622
  Receipt Date: 20130315
  Transmission Date: 20140127
  Serious: Yes (Hospitalization)
  Sender: FDA-Public Use
  Company Number: US-BIOGENIDEC-2012BI021709

PATIENT
  Age: 44 Year
  Sex: Female

DRUGS (3)
  1. AVONEX [Suspect]
     Indication: MULTIPLE SCLEROSIS
     Route: 030
     Dates: start: 20000901, end: 20121007
  2. AVONEX [Suspect]
     Indication: MULTIPLE SCLEROSIS
     Route: 030
     Dates: start: 20121007
  3. MEDROL [Concomitant]
     Indication: ANKYLOSING SPONDYLITIS

REACTIONS (4)
  - Intervertebral disc protrusion [Recovered/Resolved]
  - Hip arthroplasty [Recovered/Resolved]
  - Sciatica [Recovered/Resolved]
  - Spinal rod insertion [Unknown]
